FAERS Safety Report 12107250 (Version 1)
Quarter: 2016Q1

REPORT INFORMATION
  Report Type: Spontaneous
  Country: GB (occurrence: GB)
  Receive Date: 20160223
  Receipt Date: 20160223
  Transmission Date: 20160526
  Serious: Yes (Death)
  Sender: FDA-Public Use
  Company Number: GB-009507513-1602GBR008421

PATIENT
  Age: 63 Year
  Sex: Female
  Weight: 184 kg

DRUGS (12)
  1. ROCURONIUM BROMIDE. [Suspect]
     Active Substance: ROCURONIUM BROMIDE
     Indication: MUSCLE RELAXANT THERAPY
     Route: 042
  2. ASPIRIN. [Concomitant]
     Active Substance: ASPIRIN
  3. GLICLAZIDE [Concomitant]
     Active Substance: GLICLAZIDE
  4. ACETAMINOPHEN AND CODEINE [Concomitant]
     Active Substance: ACETAMINOPHEN\CODEINE PHOSPHATE
  5. HUMULIN NOS [Concomitant]
     Active Substance: INSULIN HUMAN
  6. METHYLENE BLUE. [Concomitant]
     Active Substance: METHYLENE BLUE
  7. RAMIPRIL. [Concomitant]
     Active Substance: RAMIPRIL
  8. PROPOFOL. [Concomitant]
     Active Substance: PROPOFOL
  9. REMIFENTANIL HYDROCHLORIDE [Concomitant]
     Active Substance: REMIFENTANIL HYDROCHLORIDE
  10. ATORVASTATIN [Concomitant]
     Active Substance: ATORVASTATIN
  11. HYDROXYZINE HYDROCHLORIDE. [Concomitant]
     Active Substance: HYDROXYZINE HYDROCHLORIDE
  12. LINAGLIPTIN [Concomitant]
     Active Substance: LINAGLIPTIN

REACTIONS (2)
  - Anaphylactic reaction [Fatal]
  - Cardiac arrest [Not Recovered/Not Resolved]

NARRATIVE: CASE EVENT DATE: 20160203
